FAERS Safety Report 20779708 (Version 1)
Quarter: 2022Q2

REPORT INFORMATION
  Report Type: Spontaneous
  Country: US (occurrence: US)
  Receive Date: 20220503
  Receipt Date: 20220503
  Transmission Date: 20220721
  Serious: No
  Sender: FDA-Public Use
  Company Number: US-VER-202100288

PATIENT
  Sex: Male

DRUGS (2)
  1. TRELSTAR [Suspect]
     Active Substance: TRIPTORELIN PAMOATE
     Indication: Product used for unknown indication
     Dosage: USING SINCE 2.5 YEARS
     Route: 065
  2. ELIGARD [Suspect]
     Active Substance: LEUPROLIDE ACETATE
     Indication: Product used for unknown indication
     Route: 065

REACTIONS (1)
  - Personality change [Unknown]
